FAERS Safety Report 21172357 (Version 1)
Quarter: 2022Q3

REPORT INFORMATION
  Report Type: Spontaneous
  Country: US (occurrence: None)
  Receive Date: 20220803
  Receipt Date: 20220803
  Transmission Date: 20221026
  Serious: No
  Sender: FDA-Public Use
  Company Number: None

PATIENT
  Age: 78 Year
  Sex: Male
  Weight: 121.9 kg

DRUGS (1)
  1. CEFTRIAXONE [Suspect]
     Active Substance: CEFTRIAXONE
     Indication: Device related infection
     Dosage: FREQUENCY : DAILY;?
     Route: 042
     Dates: start: 20220515, end: 20220603

REACTIONS (8)
  - Paraesthesia [None]
  - Pyrexia [None]
  - Dyspnoea [None]
  - Staphylococcal infection [None]
  - Streptococcal sepsis [None]
  - Eosinophil count increased [None]
  - Type IV hypersensitivity reaction [None]
  - Vitamin B1 decreased [None]

NARRATIVE: CASE EVENT DATE: 20220601
